FAERS Safety Report 6439906-0 (Version None)
Quarter: 2009Q4

REPORT INFORMATION
  Report Type: 
  Country: None (occurrence: None)
  Receive Date: 20091112
  Receipt Date: 20091112
  Transmission Date: 20100525
  Serious: Yes (Other)
  Sender: FDA-Public Use
  Company Number: None

PATIENT
  Age: 34 Year
  Sex: Female
  Weight: 76.6579 kg

DRUGS (1)
  1. CYMBALTA [Suspect]
     Indication: FIBROMYALGIA
     Dosage: 30 MG 2 PER DAY
     Dates: start: 20090925, end: 20091016

REACTIONS (4)
  - DECREASED APPETITE [None]
  - DYSURIA [None]
  - RASH [None]
  - SLEEP DISORDER [None]
